FAERS Safety Report 8403635-4 (Version None)
Quarter: 2012Q2

REPORT INFORMATION
  Report Type: 
  Country: None (occurrence: None)
  Receive Date: 20120601
  Receipt Date: 20120522
  Transmission Date: 20120825
  Serious: Yes (Hospitalization)
  Sender: FDA-Public Use
  Company Number: DE-ACTELION-A-US2012-64372

PATIENT

DRUGS (1)
  1. VENTAVIS [Suspect]
     Indication: PULMONARY ARTERIAL HYPERTENSION
     Dosage: 2.5 ?G/ML, UNK
     Route: 055
     Dates: start: 20120308

REACTIONS (12)
  - PANCYTOPENIA [None]
  - LUNG INFILTRATION [None]
  - WEIGHT INCREASED [None]
  - PYREXIA [None]
  - CARDIAC FAILURE [None]
  - TRANSFUSION [None]
  - HAEMOGLOBIN DECREASED [None]
  - HAEMORRHAGE [None]
  - MICTURITION FREQUENCY DECREASED [None]
  - HYPOCHROMIC ANAEMIA [None]
  - OEDEMA PERIPHERAL [None]
  - ESCHERICHIA URINARY TRACT INFECTION [None]
